FAERS Safety Report 4577465-8 (Version None)
Quarter: 2005Q1

REPORT INFORMATION
  Report Type: 
  Country: None (occurrence: None)
  Receive Date: 20050208
  Receipt Date: 20050126
  Transmission Date: 20050727
  Serious: Yes (Hospitalization)
  Sender: FDA-Public Use
  Company Number: 2005022464

PATIENT
  Age: 50 Year
  Sex: Female

DRUGS (1)
  1. CELECOXIB (CELECOXIB) [Suspect]
     Indication: ARTHROPATHY
     Dosage: 20 MG (200 MG, 1 IN 1 D), ORAL
     Route: 048
     Dates: start: 20050110, end: 20050117

REACTIONS (6)
  - BODY TEMPERATURE INCREASED [None]
  - DYSPNOEA [None]
  - ERYTHEMA [None]
  - FEELING ABNORMAL [None]
  - PRURITUS [None]
  - RASH PAPULAR [None]
